FAERS Safety Report 4681321-4 (Version None)
Quarter: 2005Q2

REPORT INFORMATION
  Report Type: 
  Country: None (occurrence: None)
  Receive Date: 20050601
  Receipt Date: 20050517
  Transmission Date: 20051028
  Serious: Yes (Death)
  Sender: FDA-Public Use
  Company Number: US-2005-008407

PATIENT
  Age: 75 Year
  Sex: Male

DRUGS (3)
  1. FLUDARA [Suspect]
     Indication: B-CELL SMALL LYMPHOCYTIC LYMPHOMA
     Dosage: 25 MG/M2/DAY X 5 DAYS Q 28 DAYS
  2. RITUXIMAB [Concomitant]
  3. PEGFILGRASTIM (PEGFILGRASTIM) [Concomitant]

REACTIONS (3)
  - HEPATIC CIRRHOSIS [None]
  - HEPATIC NEOPLASM MALIGNANT [None]
  - PERITONEAL MESOTHELIOMA MALIGNANT [None]
